FAERS Safety Report 22317586 (Version 1)
Quarter: 2023Q2

REPORT INFORMATION
  Report Type: Report from Study
  Country: US (occurrence: US)
  Receive Date: 20230515
  Receipt Date: 20230515
  Transmission Date: 20230721
  Serious: No
  Sender: FDA-Public Use
  Company Number: US-ACADIA PHARMACEUTICALS INC.-ACA-2023-PIM-001555

PATIENT
  Sex: Male

DRUGS (14)
  1. NUPLAZID [Suspect]
     Active Substance: PIMAVANSERIN TARTRATE
     Indication: Parkinson^s disease psychosis
     Dosage: 34 MILLIGRAM, QD
     Route: 048
     Dates: start: 20230316
  2. ASPIRIN [Concomitant]
     Active Substance: ASPIRIN
     Dosage: 81 MILLIGRAM EC
  3. CLOBETASOL [Concomitant]
     Active Substance: CLOBETASOL
     Dosage: 0.05%
  4. CLONAZEPAM [Concomitant]
     Active Substance: CLONAZEPAM
     Dosage: 0.5 MG
  5. COLACE [Concomitant]
     Active Substance: DOCUSATE SODIUM
     Dosage: 100 MILLIGRAM
  6. CULTURELLE [Concomitant]
     Active Substance: LACTOBACILLUS RHAMNOSUS
     Dosage: DIGESTIVE
  7. FLOMAX [Concomitant]
     Active Substance: TAMSULOSIN HYDROCHLORIDE
     Dosage: 0.4 MG
  8. GLYCOPYRROLATE [Concomitant]
     Active Substance: GLYCOPYRROLATE
     Dosage: 1 MILLIGRAM
  9. LEXAPRO [Concomitant]
     Active Substance: ESCITALOPRAM OXALATE
     Dosage: 20 MILLIGRAM
  10. LIPITOR [Concomitant]
     Active Substance: ATORVASTATIN CALCIUM
     Dosage: 80 MILLIGRAM
  11. METOPROLOL TARTRATE [Concomitant]
     Active Substance: METOPROLOL TARTRATE
     Dosage: 25 MILLIGRAM
  12. SINEMET [Concomitant]
     Active Substance: CARBIDOPA\LEVODOPA
     Dosage: 25-100 MG
  13. LEVOCETIRIZINE DIHYDROCHLORIDE [Concomitant]
     Active Substance: LEVOCETIRIZINE DIHYDROCHLORIDE
     Dosage: 200
  14. VITAMIN D3 [Concomitant]
     Active Substance: CHOLECALCIFEROL
     Dosage: 2000 UNIT

REACTIONS (4)
  - Adverse drug reaction [Unknown]
  - Delusion [Unknown]
  - Oedema peripheral [Unknown]
  - Hallucination [Unknown]
